FAERS Safety Report 14845594 (Version 3)
Quarter: 2018Q2

REPORT INFORMATION
  Report Type: Spontaneous
  Country: PT (occurrence: PT)
  Receive Date: 20180504
  Receipt Date: 20180601
  Transmission Date: 20180711
  Serious: Yes (Other)
  Sender: FDA-Public Use
  Company Number: PT-ABBVIE-18S-130-2342214-00

PATIENT
  Sex: Female

DRUGS (3)
  1. TIVICAY [Suspect]
     Active Substance: DOLUTEGRAVIR SODIUM
     Indication: HIV INFECTION
     Route: 065
     Dates: start: 20151226
  2. PREZISTA [Suspect]
     Active Substance: DARUNAVIR ETHANOLATE
     Indication: HIV INFECTION
     Route: 048
     Dates: start: 20151226, end: 201702
  3. RITONAVIR. [Suspect]
     Active Substance: RITONAVIR
     Indication: HIV INFECTION
     Dosage: DOSAGE FORM: UNSPECIFIED
     Route: 065
     Dates: start: 20151226

REACTIONS (23)
  - Hyperthyroidism [Unknown]
  - Leiomyoma [Recovering/Resolving]
  - Constipation [Recovering/Resolving]
  - Tooth disorder [Unknown]
  - Urinary tract infection [Unknown]
  - Oropharyngeal discomfort [Recovering/Resolving]
  - Haemorrhage [Recovering/Resolving]
  - Mobility decreased [Not Recovered/Not Resolved]
  - Menorrhagia [Unknown]
  - Hepatitis C [Recovering/Resolving]
  - Synovial cyst [Recovering/Resolving]
  - Thyroid mass [Recovering/Resolving]
  - Spleen disorder [Recovering/Resolving]
  - Vaginal lesion [Unknown]
  - Hypoaesthesia oral [Not Recovered/Not Resolved]
  - Pain in extremity [Recovering/Resolving]
  - Rheumatoid factor increased [Recovering/Resolving]
  - Thrombocytopenia [Recovering/Resolving]
  - Alopecia [Not Recovered/Not Resolved]
  - Lipoma [Not Recovered/Not Resolved]
  - Dyspnoea [Not Recovered/Not Resolved]
  - Joint swelling [Recovering/Resolving]
  - Abdominal distension [Not Recovered/Not Resolved]

NARRATIVE: CASE EVENT DATE: 2018
